FAERS Safety Report 21492882 (Version 1)
Quarter: 2022Q4

REPORT INFORMATION
  Report Type: Spontaneous
  Country: US (occurrence: None)
  Receive Date: 20221020
  Receipt Date: 20221020
  Transmission Date: 20230112
  Serious: Yes (Disabling)
  Sender: FDA-Public Use
  Company Number: None

PATIENT
  Age: 50 Year
  Sex: Male
  Weight: 85.5 kg

DRUGS (15)
  1. ROSUVASTATIN [Suspect]
     Active Substance: ROSUVASTATIN
     Indication: Low density lipoprotein increased
     Route: 048
     Dates: start: 20190815, end: 20220803
  2. ROSUVASTATIN [Suspect]
     Active Substance: ROSUVASTATIN
     Indication: High density lipoprotein decreased
  3. LEVOTHYROXINE [Concomitant]
     Active Substance: LEVOTHYROXINE
  4. LINACLOTIDE [Concomitant]
     Active Substance: LINACLOTIDE
  5. ONDANSETRON [Concomitant]
     Active Substance: ONDANSETRON
  6. ACETAMINOPHEN [Concomitant]
     Active Substance: ACETAMINOPHEN
  7. FEXOFENADINE [Concomitant]
     Active Substance: FEXOFENADINE HYDROCHLORIDE
  8. OMEPRAZOLE [Concomitant]
     Active Substance: OMEPRAZOLE
  9. SIMETHICONE (DIMETHICONE) [Concomitant]
     Active Substance: DIMETHICONE
  10. CALCIUM CARBONATE [Concomitant]
     Active Substance: CALCIUM CARBONATE
  11. LACTASE [Concomitant]
     Active Substance: LACTASE
  12. Beta Sitoserol [Concomitant]
  13. TRIAMCINOLONE [Concomitant]
     Active Substance: TRIAMCINOLONE
  14. Acetonide Lotion [Concomitant]
  15. HYDROCORTISONE [Concomitant]
     Active Substance: HYDROCORTISONE

REACTIONS (17)
  - Neurological symptom [None]
  - Low density lipoprotein increased [None]
  - Pain [None]
  - Arthralgia [None]
  - Gait disturbance [None]
  - Neuropathy peripheral [None]
  - Postural orthostatic tachycardia syndrome [None]
  - Orthostatic intolerance [None]
  - Dizziness [None]
  - Tremor [None]
  - Blood glucose decreased [None]
  - Fatigue [None]
  - Nausea [None]
  - Sweat gland disorder [None]
  - Obstructive sleep apnoea syndrome [None]
  - Gastrointestinal disorder [None]
  - Exercise tolerance decreased [None]

NARRATIVE: CASE EVENT DATE: 20191101
